FAERS Safety Report 8617950-2 (Version None)
Quarter: 2012Q3

REPORT INFORMATION
  Report Type: 
  Country: None (occurrence: None)
  Receive Date: 20120824
  Receipt Date: 20120321
  Transmission Date: 20120928
  Serious: No
  Sender: FDA-Public Use
  Company Number: US-ASTRAZENECA-2012SE19472

PATIENT
  Age: 67 Year
  Sex: Male

DRUGS (18)
  1. SYMBICORT [Suspect]
     Dosage: 160MCG-4.5MCG, TWO PUFFS INHALED BID
     Route: 055
  2. SPIRONOLACTONE [Concomitant]
  3. SPIRIVA [Concomitant]
  4. ASPIRIN [Concomitant]
  5. POTASSIUM CHLORIDE [Concomitant]
  6. SIMVASTATIN [Concomitant]
  7. ALTACE [Concomitant]
  8. AMARYL [Concomitant]
  9. PRADAXA [Concomitant]
  10. ZAROXOLYN [Concomitant]
  11. NIACIN [Concomitant]
  12. TENORMIN [Concomitant]
  13. ZYLOPRIM [Concomitant]
  14. AMIODARONE HCL [Concomitant]
  15. LASIX [Concomitant]
  16. LETAIRIS [Concomitant]
  17. AMLODIPINE [Concomitant]
  18. ISOSORBIDE DINITRATE [Concomitant]

REACTIONS (1)
  - WEIGHT DECREASED [None]
